FAERS Safety Report 12159273 (Version 1)
Quarter: 2016Q1

REPORT INFORMATION
  Report Type: Spontaneous
  Country: US (occurrence: US)
  Receive Date: 20160308
  Receipt Date: 20160308
  Transmission Date: 20160526
  Serious: Yes (Hospitalization)
  Sender: FDA-Public Use
  Company Number: US-SA-2016SA045803

PATIENT
  Age: 67 Year
  Sex: Male

DRUGS (2)
  1. ALIROCUMAB PREFILLED PEN [Concomitant]
     Active Substance: ALIROCUMAB
     Dates: start: 201512
  2. PRALUENT [Suspect]
     Active Substance: ALIROCUMAB
     Indication: BLOOD CHOLESTEROL
     Dosage: DOSE:75 UNIT(S)
     Route: 065
     Dates: start: 201512

REACTIONS (4)
  - Vascular graft [Unknown]
  - Chest pain [Not Recovered/Not Resolved]
  - Incorrect product storage [Unknown]
  - Syncope [Not Recovered/Not Resolved]
